FAERS Safety Report 4838394-5 (Version None)
Quarter: 2005Q4

REPORT INFORMATION
  Report Type: 
  Country: None (occurrence: None)
  Receive Date: 20051123
  Receipt Date: 20051115
  Transmission Date: 20060501
  Serious: Yes (Other)
  Sender: FDA-Public Use
  Company Number: 2005156584

PATIENT
  Sex: 0

DRUGS (1)
  1. LYRICA [Suspect]
     Indication: ILL-DEFINED DISORDER
     Dosage: 450 MG (1 D)

REACTIONS (2)
  - CARDIAC FAILURE CONGESTIVE [None]
  - PNEUMONIA [None]
